FAERS Safety Report 6767296-2 (Version None)
Quarter: 2010Q2

REPORT INFORMATION
  Report Type: 
  Country: None (occurrence: None)
  Receive Date: 20100614
  Receipt Date: 20100607
  Transmission Date: 20101027
  Serious: Yes (Death, Hospitalization, Other)
  Sender: FDA-Public Use
  Company Number: US-CELGENEUS-163-20785-10040736

PATIENT
  Sex: Female
  Weight: 72.64 kg

DRUGS (3)
  1. THALOMID [Suspect]
     Indication: MYELOFIBROSIS
     Route: 048
     Dates: start: 20100201, end: 20100312
  2. THALOMID [Suspect]
     Dosage: 50MG-100MG
     Route: 048
     Dates: start: 20090901, end: 20100201
  3. PREDNISONE [Concomitant]
     Indication: DRUG USE FOR UNKNOWN INDICATION
     Route: 065

REACTIONS (4)
  - ATRIAL FIBRILLATION [None]
  - BRONCHOPNEUMONIA [None]
  - PERICARDIAL EFFUSION [None]
  - SUDDEN CARDIAC DEATH [None]
